FAERS Safety Report 20505385 (Version 1)
Quarter: 2022Q1

REPORT INFORMATION
  Report Type: Other
  Country: US (occurrence: None)
  Receive Date: 20220223
  Receipt Date: 20220223
  Transmission Date: 20220423
  Serious: Yes (Hospitalization)
  Sender: FDA-Public Use
  Company Number: US-ROCHE-3028348

PATIENT
  Sex: Female
  Weight: 80.812 kg

DRUGS (4)
  1. OCREVUS [Suspect]
     Active Substance: OCRELIZUMAB
     Indication: Relapsing-remitting multiple sclerosis
     Dosage: 300 MG?DATE OF TREATMENT: 11/DEC/2017
     Route: 042
     Dates: start: 2017
  2. GABAPENTIN [Concomitant]
     Active Substance: GABAPENTIN
     Route: 048
  3. CALCIUM [Concomitant]
     Active Substance: CALCIUM
     Route: 048
  4. VITAMIN D3 [Concomitant]
     Active Substance: CHOLECALCIFEROL
     Dosage: 125 MICRO GRAM

REACTIONS (4)
  - COVID-19 [Recovered/Resolved]
  - Body height decreased [Unknown]
  - Fatigue [Unknown]
  - Pain [Unknown]

NARRATIVE: CASE EVENT DATE: 20210101
